FAERS Safety Report 7642520-2 (Version None)
Quarter: 2011Q3

REPORT INFORMATION
  Report Type: 
  Country: None (occurrence: None)
  Receive Date: 20110728
  Receipt Date: 20110715
  Transmission Date: 20111222
  Serious: Yes (Death)
  Sender: FDA-Public Use
  Company Number: US-TYCO HEALTHCARE/MALLINCKRODT-T201101402

PATIENT
  Age: 22 Year
  Sex: Male
  Weight: 104.31 kg

DRUGS (6)
  1. HYDROMORPHONE HCL [Suspect]
  2. OXYCODONE HCL [Suspect]
  3. OXYMORPHONE [Suspect]
  4. HYDROCODONE BITARTRATE [Suspect]
  5. MORPHINE [Suspect]
  6. XANAX [Suspect]

REACTIONS (8)
  - PULMONARY OEDEMA [None]
  - TOXICITY TO VARIOUS AGENTS [None]
  - ACCIDENTAL OVERDOSE [None]
  - UNRESPONSIVE TO STIMULI [None]
  - RESPIRATORY ARREST [None]
  - PNEUMONIA ASPIRATION [None]
  - LOSS OF CONSCIOUSNESS [None]
  - MULTIPLE DRUG OVERDOSE ACCIDENTAL [None]
